FAERS Safety Report 22303376 (Version 5)
Quarter: 2023Q2

REPORT INFORMATION
  Report Type: Report from Study
  Country: PE (occurrence: PE)
  Receive Date: 20230510
  Receipt Date: 20230626
  Transmission Date: 20230721
  Serious: Yes (Other)
  Sender: FDA-Public Use
  Company Number: PE-002147023-NVSC2023PE106113

PATIENT
  Age: 62 Year
  Sex: Female
  Weight: 67.6 kg

DRUGS (4)
  1. KISQALI [Suspect]
     Active Substance: RIBOCICLIB
     Indication: Breast cancer metastatic
     Dosage: 600 MG, QD (THROUGH THE MOUTH)
     Route: 048
     Dates: start: 20230420
  2. KISQALI [Suspect]
     Active Substance: RIBOCICLIB
     Dosage: 600 MG, QD (THROUGH THE MOUTH)
     Route: 048
     Dates: start: 20230423
  3. KISQALI [Suspect]
     Active Substance: RIBOCICLIB
     Dosage: UNK, QD
     Route: 048
  4. LETROZOLE [Suspect]
     Active Substance: LETROZOLE
     Indication: Product used for unknown indication
     Dosage: UNK
     Route: 065

REACTIONS (10)
  - Left ventricular hypertrophy [Unknown]
  - Gait disturbance [Unknown]
  - Blood pressure increased [Unknown]
  - Hypertension [Unknown]
  - Obesity [Unknown]
  - Decreased immune responsiveness [Unknown]
  - Cardiac discomfort [Unknown]
  - Malaise [Unknown]
  - Nausea [Unknown]
  - Discomfort [Unknown]
